FAERS Safety Report 7941430-0 (Version None)
Quarter: 2011Q4

REPORT INFORMATION
  Report Type: 
  Country: None (occurrence: None)
  Receive Date: 20111122
  Receipt Date: 20111122
  Transmission Date: 20120403
  Serious: Yes (Hospitalization)
  Sender: FDA-Public Use
  Company Number: None

PATIENT
  Sex: Female
  Weight: 71.41 kg

DRUGS (2)
  1. DOXORUBICIN HCL [Suspect]
     Dosage: 109 MG
  2. CYCLOPHOSPHAMIDE [Suspect]
     Dosage: 1086 MG

REACTIONS (7)
  - WHITE BLOOD CELL COUNT DECREASED [None]
  - UPPER RESPIRATORY TRACT INFECTION [None]
  - LYMPHOCYTE COUNT INCREASED [None]
  - CULTURE URINE POSITIVE [None]
  - NEUTROPHIL COUNT DECREASED [None]
  - BLOOD SMEAR TEST ABNORMAL [None]
  - BACTERIAL TEST POSITIVE [None]
